FAERS Safety Report 8907919 (Version 1)
Quarter: 2012Q4

REPORT INFORMATION
  Report Type: 
  Country: US (occurrence: US)
  Receive Date: 20121113
  Receipt Date: 20121113
  Transmission Date: 20130627
  Serious: Yes (Hospitalization)
  Sender: FDA-Public Use
  Company Number: US-AMGEN-USASP2012029511

PATIENT
  Age: 67 Year
  Sex: Male

DRUGS (3)
  1. ARANESP [Suspect]
     Indication: ANAEMIA
     Dosage: 100 mug, qwk
  2. IRON [Concomitant]
     Dosage: UNK
     Route: 042
  3. VITAMIN D /00107901/ [Concomitant]

REACTIONS (1)
  - Haemoglobin decreased [Not Recovered/Not Resolved]
